FAERS Safety Report 6806839-7 (Version None)
Quarter: 2010Q2

REPORT INFORMATION
  Report Type: 
  Country: None (occurrence: None)
  Receive Date: 20100629
  Receipt Date: 20080605
  Transmission Date: 20101027
  Serious: No
  Sender: FDA-Public Use
  Company Number: US-PFIZER INC-2008033493

PATIENT
  Sex: Male
  Weight: 79.5 kg

DRUGS (3)
  1. VIAGRA [Suspect]
     Indication: ERECTILE DYSFUNCTION
     Route: 048
     Dates: start: 20060824
  2. AMLODIPINE [Concomitant]
     Indication: HYPERTENSION
     Dates: start: 20030101
  3. LOVASTATIN [Concomitant]

REACTIONS (1)
  - DRUG INEFFECTIVE [None]
